FAERS Safety Report 24024858 (Version 1)
Quarter: 2024Q2

REPORT INFORMATION
  Report Type: Report from Study
  Country: JP (occurrence: JP)
  Receive Date: 20240628
  Receipt Date: 20240628
  Transmission Date: 20240716
  Serious: No
  Sender: FDA-Public Use
  Company Number: JP-ROCHE-3429884

PATIENT

DRUGS (4)
  1. ALECTINIB [Suspect]
     Active Substance: ALECTINIB
     Indication: Non-small cell lung cancer
     Route: 065
  2. CRIZOTINIB [Suspect]
     Active Substance: CRIZOTINIB
     Indication: Non-small cell lung cancer
     Route: 065
  3. LORLATINIB [Suspect]
     Active Substance: LORLATINIB
     Indication: Non-small cell lung cancer
     Route: 065
  4. CERITINIB [Suspect]
     Active Substance: CERITINIB
     Indication: Non-small cell lung cancer
     Route: 065

REACTIONS (1)
  - Drug resistance mutation [Unknown]
